FAERS Safety Report 5226886-9 (Version None)
Quarter: 2007Q1

REPORT INFORMATION
  Report Type: 
  Country: None (occurrence: None)
  Receive Date: 20070130
  Receipt Date: 20070122
  Transmission Date: 20070707
  Serious: Yes (Death, Hospitalization)
  Sender: FDA-Public Use
  Company Number: 163-21880-06110133

PATIENT
  Age: 68 Year
  Sex: Female

DRUGS (10)
  1. REVLIMID [Suspect]
     Indication: MULTIPLE MYELOMA
     Dosage: 10 MG, 1 IN 1 D, ORAL
     Route: 048
     Dates: start: 20061006, end: 20061101
  2. DEXAMETHASONE TAB [Concomitant]
  3. DETROL [Concomitant]
  4. FORADIL AEROLIZER (FORMOTEROL FUMARATE) [Concomitant]
  5. NEXIUM [Concomitant]
  6. TOPROL-XL [Concomitant]
  7. ATIVAN [Concomitant]
  8. OXYCONTIN [Concomitant]
  9. COUMADIN [Concomitant]
  10. ELAVIL [Concomitant]

REACTIONS (10)
  - ACCIDENTAL OVERDOSE [None]
  - DEMENTIA [None]
  - GENERAL PHYSICAL HEALTH DETERIORATION [None]
  - INCORRECT DOSE ADMINISTERED [None]
  - INFECTION [None]
  - MALIGNANT NEOPLASM PROGRESSION [None]
  - MULTIPLE MYELOMA [None]
  - PNEUMONIA [None]
  - SALMONELLOSIS [None]
  - STAPHYLOCOCCAL INFECTION [None]
